FAERS Safety Report 10497517 (Version 2)
Quarter: 2014Q4

REPORT INFORMATION
  Report Type: Spontaneous
  Country: JP (occurrence: None)
  Receive Date: 20141002
  Receipt Date: 20141022
  Transmission Date: 20150528
  Serious: Yes (Hospitalization)
  Sender: FDA-Public Use
  Company Number: 2554742

PATIENT
  Age: 45 Year
  Sex: Female

DRUGS (11)
  1. VANCOMYCIN HYDROCHLORIDE. [Suspect]
     Active Substance: VANCOMYCIN HYDROCHLORIDE
     Indication: PYREXIA
     Dosage: NOT REPORTED, UNKNOWN, UNKNOWN
  2. MIDAZOLAM [Suspect]
     Active Substance: MIDAZOLAM\MIDAZOLAM HYDROCHLORIDE
     Indication: SEIZURE
     Dosage: NOT REPORTED, UNKNOWN, INTRAVENOUS (NOT OTHERWISE SPECIFIFED)
     Route: 042
  3. LEVETIRACETAM. [Suspect]
     Active Substance: LEVETIRACETAM
     Indication: SEIZURE
     Dosage: NOT REPORTED, UNKNOWN, UNKNOWN
  4. PROPOFOL. [Suspect]
     Active Substance: PROPOFOL
     Indication: SEIZURE
     Dosage: NOT REPORTED, UNKNOWN, INTRAVENOUS (NOT OTHERWISE SEPCIFIED)
     Route: 042
  5. SODIUM VALPROATE [Suspect]
     Active Substance: VALPROATE SODIUM
     Indication: SEIZURE
     Dosage: NOT REPORTED, UNKNOWN, UNKNOWN
  6. CEFTRIAXONE. [Suspect]
     Active Substance: CEFTRIAXONE
     Indication: PYREXIA
     Dosage: NOT REPORTED, UNKNOWN, UNKNOWN
  7. MINOCYCLINE [Suspect]
     Active Substance: MINOCYCLINE\MINOCYCLINE HYDROCHLORIDE
     Indication: PYREXIA
     Dosage: NOT REPORTED, UNKNOWN, UNKNOWN
  8. THIOPENTAL [Suspect]
     Active Substance: THIOPENTAL
     Indication: SEIZURE
     Dosage: NOT REPORTED, UNKNOWN, INTRAVENOUS (NOT OTHERWISE SPECIFIFED)
     Route: 042
  9. PHENYTOIN. [Suspect]
     Active Substance: PHENYTOIN
     Indication: SEIZURE
     Dosage: NOT REPORTED, UNKNOWN, UNKNOWN
  10. PHENOBARBITAL. [Suspect]
     Active Substance: PHENOBARBITAL
     Indication: SEIZURE
     Dosage: NOT REPORTED, UNKNOWN, UNKNOWN
  11. ACYCLOVIR. [Suspect]
     Active Substance: ACYCLOVIR
     Indication: PYREXIA
     Dosage: NOT REPORTED, UNKNOWN, UNKNOWN

REACTIONS (2)
  - Drug reaction with eosinophilia and systemic symptoms [None]
  - Histiocytosis haematophagic [None]
